FAERS Safety Report 4595997-3 (Version None)
Quarter: 2005Q1

REPORT INFORMATION
  Report Type: 
  Country: None (occurrence: None)
  Receive Date: 20050224
  Receipt Date: 20050209
  Transmission Date: 20050727
  Serious: Yes (Hospitalization)
  Sender: FDA-Public Use
  Company Number: 2005AP00255

PATIENT
  Age: 83 Year
  Sex: Male

DRUGS (5)
  1. ZOLADEX [Suspect]
     Indication: PROSTATE CANCER
     Dosage: 10.8 MG Q3MO SQ
     Route: 058
     Dates: start: 20031121
  2. BUP-4 [Concomitant]
  3. CARDENALIN [Concomitant]
  4. NARCARICIN [Concomitant]
  5. AMARYL [Concomitant]

REACTIONS (1)
  - EOSINOPHILIC PNEUMONIA [None]
